FAERS Safety Report 23966506 (Version 1)
Quarter: 2024Q2

REPORT INFORMATION
  Report Type: Report from Study
  Country: US (occurrence: US)
  Receive Date: 20240612
  Receipt Date: 20240612
  Transmission Date: 20240716
  Serious: Yes (Other)
  Sender: FDA-Public Use
  Company Number: US-MYLANLABS-2024M1053003

PATIENT

DRUGS (1)
  1. ALLOPURINOL [Suspect]
     Active Substance: ALLOPURINOL
     Indication: Prophylaxis
     Dosage: UNK
     Route: 065

REACTIONS (1)
  - Drug ineffective [Unknown]
